FAERS Safety Report 17884271 (Version 1)
Quarter: 2020Q2

REPORT INFORMATION
  Report Type: Spontaneous
  Country: FR (occurrence: FR)
  Receive Date: 20200611
  Receipt Date: 20200611
  Transmission Date: 20200714
  Serious: Yes (Death, Life-Threatening, Hospitalization)
  Sender: FDA-Public Use
  Company Number: FR-ACCORD-184581

PATIENT
  Age: 66 Year
  Sex: Male
  Weight: 72.4 kg

DRUGS (9)
  1. KARDEGIC [Concomitant]
     Active Substance: ASPIRIN DL-LYSINE
     Dosage: STRENGTH: 75 MG
  2. CALCIPRAT VITAMINE D3 [Concomitant]
     Active Substance: CALCIUM CARBONATE\CHOLECALCIFEROL
  3. FLAGYL [Concomitant]
     Active Substance: METRONIDAZOLE\METRONIDAZOLE HYDROCHLORIDE
     Dosage: STRENGTH: 500 MG
  4. RAMIPRIL. [Concomitant]
     Active Substance: RAMIPRIL
  5. TOPOTECANE ACCORD [Suspect]
     Active Substance: TOPOTECAN HYDROCHLORIDE
     Indication: METASTATIC BRONCHIAL CARCINOMA
     Route: 048
     Dates: start: 20200106, end: 20200110
  6. ZARZIO [Concomitant]
     Active Substance: FILGRASTIM
  7. BISOCE [Concomitant]
     Active Substance: BISOPROLOL
     Dosage: STRENGTH: 5 MG
  8. INSPRA [Concomitant]
     Active Substance: EPLERENONE
     Dosage: STRENGTH: 25 MG
  9. INNOHEP [Concomitant]
     Active Substance: TINZAPARIN SODIUM

REACTIONS (5)
  - Renal failure [Recovering/Resolving]
  - Weight decreased [Recovering/Resolving]
  - Nausea [Recovered/Resolved]
  - Decreased appetite [Recovering/Resolving]
  - Pancytopenia [Recovering/Resolving]

NARRATIVE: CASE EVENT DATE: 20200111
